FAERS Safety Report 4716939-3 (Version None)
Quarter: 2005Q3

REPORT INFORMATION
  Report Type: 
  Country: None (occurrence: None)
  Receive Date: 20050714
  Receipt Date: 20050706
  Transmission Date: 20060218
  Serious: Yes (Other)
  Sender: FDA-Public Use
  Company Number: 163-20785-04100108

PATIENT
  Sex: 0

DRUGS (1)
  1. THALOMID [Suspect]
     Indication: CHRONIC LYMPHOCYTIC LEUKAEMIA RECURRENT
     Dosage: 200MG DAILY DAYS 1-14 INCREASING BY 200MG Q2WKS UP TO 1000MG., ORAL
     Route: 048
     Dates: start: 20020417

REACTIONS (26)
  - ASTHENIA [None]
  - BLOOD BILIRUBIN ABNORMAL [None]
  - BLOOD CREATININE ABNORMAL [None]
  - CHILLS [None]
  - CONJUNCTIVITIS [None]
  - CONSTIPATION [None]
  - DEPRESSED LEVEL OF CONSCIOUSNESS [None]
  - DRY SKIN [None]
  - FEBRILE NEUTROPENIA [None]
  - GRANULOCYTES ABNORMAL [None]
  - HAEMOGLOBIN ABNORMAL [None]
  - HYPERGLYCAEMIA [None]
  - HYPERTENSION [None]
  - INFECTION [None]
  - LETHARGY [None]
  - LUNG INFILTRATION [None]
  - MALAISE [None]
  - MYALGIA [None]
  - NEUTROPHIL COUNT DECREASED [None]
  - PERIPHERAL SENSORY NEUROPATHY [None]
  - PHARYNGITIS [None]
  - PNEUMONITIS [None]
  - PYREXIA [None]
  - SINUS BRADYCARDIA [None]
  - STOMATITIS [None]
  - VOMITING [None]
